FAERS Safety Report 6006940-4 (Version None)
Quarter: 2008Q4

REPORT INFORMATION
  Report Type: 
  Country: None (occurrence: None)
  Receive Date: 20081217
  Receipt Date: 20071126
  Transmission Date: 20090506
  Serious: No
  Sender: FDA-Public Use
  Company Number: US-ASTRAZENECA-2007UW27100

PATIENT
  Age: 84 Year
  Sex: Female
  Weight: 54.4 kg

DRUGS (6)
  1. CRESTOR [Suspect]
     Indication: BLOOD CHOLESTEROL INCREASED
     Route: 048
     Dates: start: 20071012
  2. FOSAMAX [Concomitant]
  3. DIOVAN [Concomitant]
  4. SOTALOL HCL [Concomitant]
  5. MICRO-K [Concomitant]
  6. VITAMINS [Concomitant]

REACTIONS (1)
  - ALOPECIA [None]
